FAERS Safety Report 23627525 (Version 1)
Quarter: 2024Q1

REPORT INFORMATION
  Report Type: Spontaneous
  Country: FR (occurrence: FR)
  Receive Date: 20240313
  Receipt Date: 20240313
  Transmission Date: 20240409
  Serious: Yes (Other)
  Sender: FDA-Public Use
  Company Number: None

PATIENT
  Age: 64 Year
  Sex: Male

DRUGS (3)
  1. LEVOFLOXACIN [Suspect]
     Active Substance: LEVOFLOXACIN
     Indication: Legionella infection
     Route: 042
     Dates: start: 20231220, end: 20231231
  2. LEVOFLOXACIN [Suspect]
     Active Substance: LEVOFLOXACIN
     Indication: Legionella infection
     Route: 048
     Dates: start: 20240101, end: 20240105
  3. SPIRAMYCIN [Suspect]
     Active Substance: SPIRAMYCIN
     Indication: Legionella infection
     Dosage: 9 10^6 IU, ROVAMYCIN 1.5 MILLION INTERNATIONAL UNITS, LYOPHILISATE FOR PARENTERAL USE
     Route: 042
     Dates: start: 20231220, end: 20240102

REACTIONS (1)
  - Rash maculo-papular [Recovering/Resolving]

NARRATIVE: CASE EVENT DATE: 20231222
